FAERS Safety Report 4900095-2 (Version None)
Quarter: 2006Q1

REPORT INFORMATION
  Report Type: 
  Country: None (occurrence: None)
  Receive Date: 20060203
  Receipt Date: 20060126
  Transmission Date: 20060701
  Serious: Yes (Other)
  Sender: FDA-Public Use
  Company Number: PHHO2006BR01857

PATIENT
  Age: 29 Year
  Sex: Male
  Weight: 110 kg

DRUGS (1)
  1. DIOVAN AMLO [Suspect]
     Indication: HYPERTENSION
     Dosage: 160/5
     Route: 048
     Dates: start: 20051103, end: 20060101

REACTIONS (4)
  - ABSCESS DRAINAGE [None]
  - FURUNCLE [None]
  - PRURITUS [None]
  - RASH [None]
